FAERS Safety Report 5929758-7 (Version None)
Quarter: 2008Q4

REPORT INFORMATION
  Report Type: 
  Country: None (occurrence: None)
  Receive Date: 20081024
  Receipt Date: 20081017
  Transmission Date: 20090506
  Serious: Yes (Hospitalization)
  Sender: FDA-Public Use
  Company Number: NL-JNJFOC-20071205485

PATIENT
  Sex: Male
  Weight: 70 kg

DRUGS (2)
  1. CONCERTA [Suspect]
     Dosage: 2 TABLETS
     Route: 048
  2. CONCERTA [Suspect]
     Indication: ATTENTION DEFICIT/HYPERACTIVITY DISORDER
     Route: 048

REACTIONS (5)
  - CHEST DISCOMFORT [None]
  - HEART RATE DECREASED [None]
  - HEART RATE IRREGULAR [None]
  - MUSCLE SPASMS [None]
  - PALPITATIONS [None]
